FAERS Safety Report 12873138 (Version 1)
Quarter: 2016Q4

REPORT INFORMATION
  Report Type: Spontaneous
  Country: US (occurrence: US)
  Receive Date: 20161021
  Receipt Date: 20161021
  Transmission Date: 20170207
  Serious: No
  Sender: FDA-Public Use
  Company Number: US-BEH-2016074474

PATIENT
  Sex: Female

DRUGS (1)
  1. HIZENTRA [Suspect]
     Active Substance: HUMAN IMMUNOGLOBULIN G
     Indication: PRODUCT USED FOR UNKNOWN INDICATION
     Dosage: 12 G, UNK
     Route: 065

REACTIONS (6)
  - Cough [Unknown]
  - Ear pain [Unknown]
  - Influenza like illness [Unknown]
  - Sinus pain [Unknown]
  - Dyspnoea [Unknown]
  - Asthma [Unknown]
